FAERS Safety Report 8493116 (Version 2)
Quarter: 2013Q4

REPORT INFORMATION
  Report Type: Spontaneous
  Country: JP (occurrence: None)
  Receive Date: 20120327
  Receipt Date: 20131106
  Transmission Date: 20140711
  Serious: Yes (Hospitalization, Other)
  Sender: FDA-Public Use
  Company Number: 2009JP005038

PATIENT
  Age: 38 Year
  Sex: Female
  Weight: 52.4 kg

DRUGS (17)
  1. PROGRAF(TACROLIMUS) CAPSULE [Suspect]
     Indication: LUPUS NEPHRITIS
     Dosage: 1.5 MG,/D, ORAL
     Route: 048
     Dates: start: 20071031, end: 20111025
  2. BETAMETHASONE [Suspect]
     Indication: LUPUS NEPHRITIS
     Dosage: SEE IMAGE
     Route: 048
     Dates: start: 20080605, end: 20080702
  3. PREDONINE (PREDNISOLONE) [Concomitant]
  4. ULGUT (BENEXATE HYDROCHLORIDE) CAPSULE [Concomitant]
  5. ACINON (NIZATIDINE) CAPSULE [Concomitant]
  6. COMELIAN (DILAZEP DIHYDROCHLORIDE) [Concomitant]
  7. SLOW-FE (FERROUS SULFATE) [Concomitant]
  8. ONEALFA (ALFACALCIDOL) [Concomitant]
  9. ZANTAC [Concomitant]
  10. ISODINE (POVIDONE-IODINE) MOUTH WASH [Concomitant]
  11. FERROMIA(FERROUS SODIUM CITRATE) [Concomitant]
  12. IMURAN?(AZATHIOPRINE) [Concomitant]
  13. EDIROL (ELDECALCITOL) [Concomitant]
  14. BENET (RISEDRONATE SODIUM) [Concomitant]
  15. PARIET (RABEPRAZOLE SODIUM) [Concomitant]
  16. TAKEPRON (LANSOPRAZOLE) [Concomitant]
  17. GASMOTIN (MOSAPRIDE CITRATE) [Concomitant]

REACTIONS (12)
  - Cataract [None]
  - Malaise [None]
  - Anaemia [None]
  - Nephritis [None]
  - Condition aggravated [None]
  - Diarrhoea [None]
  - Menorrhagia [None]
  - Dysmenorrhoea [None]
  - Abdominal pain upper [None]
  - Thirst [None]
  - Gastrooesophageal reflux disease [None]
  - Hepatic artery aneurysm [None]
